FAERS Safety Report 8369698-X (Version None)
Quarter: 2012Q2

REPORT INFORMATION
  Report Type: 
  Country: None (occurrence: None)
  Receive Date: 20120518
  Receipt Date: 20120517
  Transmission Date: 20120825
  Serious: Yes (Hospitalization, Other)
  Sender: FDA-Public Use
  Company Number: PHEH2010US03463

PATIENT
  Sex: Female

DRUGS (47)
  1. COLACE [Concomitant]
     Dosage: 100 MG, BID
     Route: 048
  2. COMBIVENT [Concomitant]
  3. LANTUS [Concomitant]
     Dosage: 70 U, QD
     Route: 058
  4. METFORMIN HCL [Concomitant]
     Dosage: 1000 MG, BID
     Route: 048
  5. MOXIFLOXACIN [Concomitant]
     Dosage: 400 MG, QD
     Route: 042
  6. LOPERAMIDE HCL [Concomitant]
     Dosage: 2 DF, UNK
     Route: 048
  7. GLUCOPHAGE [Concomitant]
     Dosage: 2 G, QD
  8. AUGMENTIN [Concomitant]
  9. SIMVASTATIN [Concomitant]
  10. LISINOPRIL [Concomitant]
     Dosage: 5 MG, BID
     Route: 048
  11. METHADONE HYDROCHLORIDE [Concomitant]
     Dosage: 20 MG, TID
  12. DIPHENHYDRAMINE HYDROCHLORIDE [Concomitant]
  13. PROVENTIL [Concomitant]
     Dosage: 2 PUFFS, Q4H
  14. PERCOCET [Concomitant]
  15. ASACOL [Concomitant]
  16. HUMULIN R [Concomitant]
  17. SPIRIVA [Concomitant]
  18. REGLAN [Concomitant]
     Dosage: 5 MG, Q6H
     Route: 048
  19. AVELOX [Concomitant]
     Dosage: 400 MG, QD
     Route: 042
  20. UNASYN [Concomitant]
     Dosage: 3 G, Q6H
     Route: 042
  21. ATIVAN [Concomitant]
     Dosage: 2 DF, QHS
     Route: 048
  22. ZOCOR [Concomitant]
     Dosage: 10 MG, QD
  23. NEURONTIN [Concomitant]
  24. DEMEROL [Concomitant]
  25. NICOTINE [Concomitant]
     Dosage: 21 MG, QD
  26. SYMLIN [Concomitant]
     Dosage: 45 UG, BEFORE EACH MEAL
  27. ALBUTEROL [Concomitant]
  28. PENTASA [Concomitant]
  29. DILAUDID [Concomitant]
  30. VANCOMYCIN [Concomitant]
  31. PROTONIX [Concomitant]
  32. WELLBUTRIN [Concomitant]
  33. LIDOCAINE [Concomitant]
     Dosage: 1 DF, Q12H
     Route: 061
  34. ASPIRIN [Concomitant]
     Dosage: 81 MG, UNK
     Route: 048
  35. BENADRYL [Concomitant]
     Dosage: 25 MG, Q6H, PRN
     Route: 048
  36. NARCAN [Concomitant]
     Dosage: 0.04 MG, UNK
     Route: 042
  37. CHANTIX [Concomitant]
     Dosage: 1 MG, BID
     Route: 048
  38. SYMBICORT [Concomitant]
     Dosage: 2 PUFFS, BID
  39. ZOMETA [Suspect]
     Indication: OSTEOPENIA
     Route: 042
     Dates: start: 20060101
  40. OPIUM ^DAK^ [Suspect]
  41. ZESTRIL [Concomitant]
  42. VICODIN [Concomitant]
  43. TRIAMTERENE AND HYDROCHLOROTHIAZIDE [Concomitant]
  44. FLOVENT [Concomitant]
  45. TARCEVA [Concomitant]
  46. ANTICOAGULANTS [Concomitant]
  47. DOXYCYCLINE [Concomitant]
     Dosage: 100 MG, BID
     Route: 048

REACTIONS (100)
  - GINGIVITIS [None]
  - EXPOSED BONE IN JAW [None]
  - DIVERTICULITIS [None]
  - COLITIS ULCERATIVE [None]
  - OSTEOPOROSIS [None]
  - OSTEOMYELITIS [None]
  - SOMNOLENCE [None]
  - HYPOXIA [None]
  - LUNG DISORDER [None]
  - OEDEMA PERIPHERAL [None]
  - IMPAIRED GASTRIC EMPTYING [None]
  - ANAEMIA [None]
  - MUSCLE STRAIN [None]
  - SEPSIS [None]
  - PERIODONTITIS [None]
  - LYMPHADENOPATHY [None]
  - DIARRHOEA HAEMORRHAGIC [None]
  - CROHN'S DISEASE [None]
  - INTERVERTEBRAL DISC PROTRUSION [None]
  - HAEMATURIA [None]
  - ADENOCARCINOMA [None]
  - PARAESTHESIA [None]
  - GASTROOESOPHAGEAL REFLUX DISEASE [None]
  - NAUSEA [None]
  - OSTEONECROSIS OF JAW [None]
  - DEFORMITY [None]
  - BONE LOSS [None]
  - OBSTRUCTIVE AIRWAYS DISORDER [None]
  - HEPATIC STEATOSIS [None]
  - DEEP VEIN THROMBOSIS [None]
  - RENAL FAILURE CHRONIC [None]
  - CEREBRAL ISCHAEMIA [None]
  - ARTHRALGIA [None]
  - HYPERTENSION [None]
  - LEUKOCYTOSIS [None]
  - OEDEMA [None]
  - INSOMNIA [None]
  - GLAUCOMA [None]
  - VOMITING [None]
  - PAIN [None]
  - EMOTIONAL DISTRESS [None]
  - TOOTH ABSCESS [None]
  - LUNG NEOPLASM [None]
  - PLEURAL EFFUSION [None]
  - DIARRHOEA [None]
  - TACHYCARDIA [None]
  - VISION BLURRED [None]
  - PROTEINURIA [None]
  - CHEST PAIN [None]
  - METATARSUS PRIMUS VARUS [None]
  - PANIC ATTACK [None]
  - ONYCHOMYCOSIS [None]
  - DRUG WITHDRAWAL SYNDROME [None]
  - PERIPHERAL VASCULAR DISORDER [None]
  - QUALITY OF LIFE DECREASED [None]
  - SLEEP APNOEA SYNDROME [None]
  - EMPHYSEMA [None]
  - EXOPHTHALMOS [None]
  - PALPITATIONS [None]
  - REVERSIBLE AIRWAYS OBSTRUCTION [None]
  - CAROTID ARTERY STENOSIS [None]
  - MASTICATION DISORDER [None]
  - ACTIVITIES OF DAILY LIVING IMPAIRED [None]
  - PURULENT DISCHARGE [None]
  - PRIMARY SEQUESTRUM [None]
  - CHRONIC SINUSITIS [None]
  - CARDIAC FAILURE CONGESTIVE [None]
  - CHRONIC OBSTRUCTIVE PULMONARY DISEASE [None]
  - HIATUS HERNIA [None]
  - ILEUS [None]
  - STREPTOCOCCAL INFECTION [None]
  - HYPOAESTHESIA [None]
  - GAIT DISTURBANCE [None]
  - DIZZINESS [None]
  - ATELECTASIS [None]
  - INTERVERTEBRAL DISC DISORDER [None]
  - INTERVERTEBRAL DISC DEGENERATION [None]
  - INTERVERTEBRAL DISC SPACE NARROWING [None]
  - CLAUSTROPHOBIA [None]
  - SWELLING FACE [None]
  - OESOPHAGITIS [None]
  - DYSLIPIDAEMIA [None]
  - STRESS [None]
  - THROMBOPHLEBITIS [None]
  - ANXIETY [None]
  - OSTEOLYSIS [None]
  - OSTEITIS [None]
  - TOOTH LOSS [None]
  - ADRENAL DISORDER [None]
  - BONE CYST [None]
  - VENOUS INSUFFICIENCY [None]
  - DYSPNOEA EXERTIONAL [None]
  - TINEA PEDIS [None]
  - SUBCUTANEOUS ABSCESS [None]
  - DYSPNOEA [None]
  - HALLUCINATION [None]
  - DUODENITIS [None]
  - VARICOSE VEIN [None]
  - RETINOPATHY [None]
  - RHEUMATOID ARTHRITIS [None]
